FAERS Safety Report 16769588 (Version 3)
Quarter: 2019Q4

REPORT INFORMATION
  Report Type: Report from Study
  Country: None (occurrence: ES)
  Receive Date: 20190903
  Receipt Date: 20191021
  Transmission Date: 20200122
  Serious: Yes (Other)
  Sender: FDA-Public Use
  Company Number: ES-ABBVIE-19S-144-2817370-00

PATIENT
  Age: 66 Year
  Sex: Male
  Weight: 100 kg

DRUGS (1)
  1. DUODOPA [Suspect]
     Active Substance: CARBIDOPA\LEVODOPA
     Indication: PARKINSON^S DISEASE
     Route: 050
     Dates: start: 20180322, end: 201909

REACTIONS (11)
  - Medical device site pain [Unknown]
  - Stoma site discharge [Not Recovered/Not Resolved]
  - Drug abuse [Unknown]
  - Stoma site infection [Not Recovered/Not Resolved]
  - Stoma site odour [Recovered/Resolved]
  - Stoma site odour [Recovered/Resolved]
  - Gastritis [Unknown]
  - Stoma site haemorrhage [Recovered/Resolved]
  - Stoma site haemorrhage [Recovered/Resolved]
  - Embedded device [Unknown]
  - Stoma site pain [Not Recovered/Not Resolved]

NARRATIVE: CASE EVENT DATE: 2019
